FAERS Safety Report 8495288-4 (Version None)
Quarter: 2012Q3

REPORT INFORMATION
  Report Type: 
  Country: None (occurrence: None)
  Receive Date: 20120709
  Receipt Date: 20120620
  Transmission Date: 20120928
  Serious: No
  Sender: FDA-Public Use
  Company Number: US-ASTRAZENECA-2012SE41827

PATIENT
  Age: 76 Year
  Sex: Male
  Weight: 77.1 kg

DRUGS (9)
  1. NEXIUM [Suspect]
     Indication: POSTOPERATIVE CARE
     Route: 048
  2. NEXIUM [Suspect]
     Route: 048
  3. NEXIUM [Suspect]
     Route: 048
  4. TRICOR [Concomitant]
     Indication: BLOOD TRIGLYCERIDES INCREASED
  5. NEXIUM [Suspect]
     Indication: GASTROOESOPHAGEAL REFLUX DISEASE
     Route: 048
  6. ATORVASTATIN [Concomitant]
     Indication: BLOOD TRIGLYCERIDES INCREASED
  7. CITALOPRAM HYDROBROMIDE [Concomitant]
  8. ASPIRIN [Concomitant]
  9. PRAMIPEXOLE DIHYCHLORIDE [Concomitant]
     Indication: MUSCLE SPASMS

REACTIONS (5)
  - THROAT IRRITATION [None]
  - REGURGITATION [None]
  - DYSPHAGIA [None]
  - DRUG INEFFECTIVE FOR UNAPPROVED INDICATION [None]
  - OFF LABEL USE [None]
